FAERS Safety Report 7599646-1 (Version None)
Quarter: 2011Q2

REPORT INFORMATION
  Report Type: 
  Country: None (occurrence: None)
  Receive Date: 20110629
  Receipt Date: 20110616
  Transmission Date: 20111010
  Serious: Yes (Other)
  Sender: FDA-Public Use
  Company Number: 1000021750

PATIENT
  Age: 79 Year
  Sex: Female

DRUGS (4)
  1. CARIOASPIRIN (ACETYLSALICYLIC ACID) (TABLETS) (ACETYLSALICYLIC ACID) [Concomitant]
  2. MEMANTINE HYDROCHLORIDE [Suspect]
     Indication: DEMENTIA ALZHEIMER'S TYPE
     Dosage: 20 MG (20 MG,1 IN 1 D),ORAL
     Route: 048
     Dates: start: 20110201, end: 20110501
  3. LISINOPRIL (LISINOPRIL) (TABLETS) (LISINOPRIL) [Concomitant]
  4. LACIREX (LACIDIPINE) (TABLETS) (LACIDIPINE) [Concomitant]

REACTIONS (1)
  - EPILEPSY [None]
